FAERS Safety Report 7403671-0 (Version None)
Quarter: 2011Q2

REPORT INFORMATION
  Report Type: 
  Country: None (occurrence: None)
  Receive Date: 20110408
  Receipt Date: 20110328
  Transmission Date: 20111010
  Serious: Yes (Hospitalization)
  Sender: FDA-Public Use
  Company Number: PHNU2007DE03381

PATIENT
  Sex: Female
  Weight: 81 kg

DRUGS (4)
  1. METFORMIN [Concomitant]
     Indication: DIABETES MELLITUS
     Dates: start: 20061210
  2. ENAHEXAL [Concomitant]
     Indication: HYPERTENSION
     Dates: start: 19990101
  3. FEMARA [Suspect]
     Indication: BREAST CANCER
     Dosage: 2.5 MG, QD
     Route: 048
     Dates: start: 20060612
  4. METOPROLOL [Concomitant]
     Indication: HYPERTENSION
     Dosage: UNK, UNK
     Dates: start: 19950101

REACTIONS (3)
  - FEMORAL NECK FRACTURE [None]
  - RADIUS FRACTURE [None]
  - FALL [None]
